FAERS Safety Report 7581706-2 (Version None)
Quarter: 2011Q2

REPORT INFORMATION
  Report Type: 
  Country: None (occurrence: None)
  Receive Date: 20110629
  Receipt Date: 20110609
  Transmission Date: 20111010
  Serious: Yes (Hospitalization, Other)
  Sender: FDA-Public Use
  Company Number: US-BAYER-2011-045834

PATIENT
  Age: 16 Year
  Sex: Female
  Weight: 55.782 kg

DRUGS (3)
  1. YAZ [Suspect]
     Indication: OVARIAN CYST
     Dosage: UNK
     Dates: start: 20090101, end: 20090801
  2. PERCOCET [Concomitant]
  3. PEPCID [Concomitant]

REACTIONS (6)
  - BILIARY DYSKINESIA [None]
  - ABDOMINAL DISCOMFORT [None]
  - ABDOMINAL PAIN [None]
  - CHOLECYSTITIS CHRONIC [None]
  - PANCREATITIS ACUTE [None]
  - CHOLELITHIASIS [None]
